FAERS Safety Report 25005098 (Version 1)
Quarter: 2025Q1

REPORT INFORMATION
  Report Type: Spontaneous
  Country: CN (occurrence: CN)
  Receive Date: 20250224
  Receipt Date: 20250224
  Transmission Date: 20250409
  Serious: Yes (Other)
  Sender: PFIZER
  Company Number: CN-PFIZER INC-PV202500020234

PATIENT
  Age: 38 Year
  Sex: Male

DRUGS (8)
  1. CYTARABINE [Suspect]
     Active Substance: CYTARABINE
     Indication: Acute myeloid leukaemia
     Dates: start: 20231101
  2. CYTARABINE [Suspect]
     Active Substance: CYTARABINE
     Dosage: 4.5 G Q12 H ON DAYS 1-3
     Route: 042
     Dates: start: 20231209
  3. CYTARABINE [Suspect]
     Active Substance: CYTARABINE
     Dosage: 4.5 G Q12 H ON DAYS 1-3
     Route: 042
     Dates: start: 20240116
  4. CYTARABINE [Suspect]
     Active Substance: CYTARABINE
     Dosage: 4.5 G Q12 H ON DAYS 1-3
     Route: 042
     Dates: start: 20240301
  5. MITOXANTRONE [Concomitant]
     Active Substance: MITOXANTRONE HYDROCHLORIDE
     Indication: Acute myeloid leukaemia
     Route: 042
     Dates: start: 20231101
  6. ONDANSETRON [Concomitant]
     Active Substance: ONDANSETRON
  7. TROPISETRON [Concomitant]
     Active Substance: TROPISETRON
  8. DEXAMETHASONE [Concomitant]
     Active Substance: DEXAMETHASONE

REACTIONS (1)
  - Dysphonia [Recovered/Resolved]

NARRATIVE: CASE EVENT DATE: 20231212
